FAERS Safety Report 7157909-8 (Version None)
Quarter: 2010Q4

REPORT INFORMATION
  Report Type: 
  Country: None (occurrence: None)
  Receive Date: 20101130
  Receipt Date: 20101117
  Transmission Date: 20110411
  Serious: Yes (Other)
  Sender: FDA-Public Use
  Company Number: 755585

PATIENT
  Age: 18 Year
  Sex: Female
  Weight: 55.1 kg

DRUGS (10)
  1. CYTARABINE [Suspect]
     Indication: LEUKAEMIA
     Dosage: 70 MG, ONCE, INTRATRACHEAL, 135MG, Q 12 H, INTRAVENOUS
     Route: 037
     Dates: start: 20100907, end: 20100907
  2. CYTARABINE [Suspect]
     Indication: LEUKAEMIA
     Dosage: 70 MG, ONCE, INTRATRACHEAL, 135MG, Q 12 H, INTRAVENOUS
     Route: 037
     Dates: start: 20100908, end: 20100917
  3. VANCOMYCIN HYDROCHLORIDE [Concomitant]
  4. METRONIDAZOLE [Concomitant]
  5. ETOPOSIDE [Concomitant]
  6. MEROPENEM [Concomitant]
  7. AMPHOTERICIN B [Concomitant]
  8. DAUNORUBICIN [Concomitant]
  9. FLUCONAZOLE [Concomitant]
  10. COTRIM [Concomitant]

REACTIONS (6)
  - CAECITIS [None]
  - DISEASE PROGRESSION [None]
  - HYPOTENSION [None]
  - LEUKAEMIA [None]
  - RECTAL HAEMORRHAGE [None]
  - VAGINAL HAEMORRHAGE [None]
